FAERS Safety Report 8840133 (Version 2)
Quarter: 2012Q4

REPORT INFORMATION
  Report Type: 
  Country: US (occurrence: US)
  Receive Date: 20121015
  Receipt Date: 20121108
  Transmission Date: 20130627
  Serious: No
  Sender: FDA-Public Use
  Company Number: US-PFIZER INC-2012250384

PATIENT
  Age: 70 Year
  Sex: Female

DRUGS (3)
  1. XALATAN [Suspect]
     Indication: GLAUCOMA
     Dosage: 1 Gtt, 1x/day
     Dates: start: 20090702, end: 20091118
  2. PILOCARPINE [Suspect]
     Indication: GLAUCOMA
     Dosage: 1 Gtt, 4x/day
     Dates: start: 20020116
  3. TRAVATAN [Suspect]
     Indication: GLAUCOMA
     Dosage: 1 Gtt, 1x/day
     Dates: start: 20020101

REACTIONS (2)
  - Tremor [Unknown]
  - Dysgraphia [Unknown]
